FAERS Safety Report 5291485-X (Version None)
Quarter: 2007Q2

REPORT INFORMATION
  Report Type: 
  Country: None (occurrence: None)
  Receive Date: 20070403
  Receipt Date: 20070321
  Transmission Date: 20071010
  Serious: No
  Sender: FDA-Public Use
  Company Number: 2007SP001052

PATIENT
  Sex: Male

DRUGS (6)
  1. LUNESTA [Suspect]
     Indication: INSOMNIA
     Dosage: 3 MG; PRN; ORAL
     Route: 048
     Dates: start: 20061201
  2. PAXIL [Suspect]
     Dosage: ORAL
     Route: 048
  3. OXCARBAZEPINE [Suspect]
     Dosage: ORAL
     Route: 048
  4. CODEINE [Suspect]
     Indication: PAIN
     Dosage: ORAL
     Route: 048
  5. PERCOCET [Suspect]
     Indication: PAIN
     Dosage: ORAL
     Route: 048
  6. CYMBALTA [Concomitant]

REACTIONS (5)
  - ABNORMAL DREAMS [None]
  - CHOKING SENSATION [None]
  - HYPERHIDROSIS [None]
  - MULTIPLE DRUG OVERDOSE [None]
  - SUICIDE ATTEMPT [None]
